FAERS Safety Report 14101822 (Version 2)
Quarter: 2017Q4

REPORT INFORMATION
  Report Type: Report from Study
  Country: US (occurrence: US)
  Receive Date: 20171018
  Receipt Date: 20171024
  Transmission Date: 20180321
  Serious: No
  Sender: FDA-Public Use
  Company Number: US-AMGEN-USASL2017156635

PATIENT
  Age: 73 Year
  Sex: Female

DRUGS (1)
  1. ENBREL [Suspect]
     Active Substance: ETANERCEPT
     Indication: RHEUMATOID ARTHRITIS
     Dosage: 50 MG, QWK
     Route: 065
     Dates: end: 201710

REACTIONS (5)
  - Injection site pruritus [Unknown]
  - Drug dose omission [Unknown]
  - Rash [Unknown]
  - Abdominal pain upper [Unknown]
  - Injection site erythema [Unknown]

NARRATIVE: CASE EVENT DATE: 20171012
